FAERS Safety Report 18053009 (Version 2)
Quarter: 2021Q4

REPORT INFORMATION
  Report Type: Other
  Country: IT (occurrence: None)
  Receive Date: 20200721
  Receipt Date: 20211206
  Transmission Date: 20220303
  Serious: Yes (Hospitalization)
  Sender: FDA-Public Use
  Company Number: IT-ROCHE-2644719

PATIENT
  Age: 72 Year
  Sex: Male

DRUGS (10)
  1. TOCILIZUMAB [Suspect]
     Active Substance: TOCILIZUMAB
     Indication: COVID-19
     Route: 058
     Dates: start: 20200328
  2. TOCILIZUMAB [Suspect]
     Active Substance: TOCILIZUMAB
     Indication: Acute respiratory failure
  3. TOCILIZUMAB [Suspect]
     Active Substance: TOCILIZUMAB
     Indication: Acute respiratory distress syndrome
  4. TOCILIZUMAB [Suspect]
     Active Substance: TOCILIZUMAB
     Indication: Cytokine storm
  5. CHLOROQUINE [Concomitant]
     Active Substance: CHLOROQUINE
     Indication: COVID-19
  6. DARUNAVIR [Concomitant]
     Active Substance: DARUNAVIR
     Indication: COVID-19
  7. VITAMIN C [Concomitant]
     Active Substance: ASCORBIC ACID
     Indication: COVID-19
  8. ACETYLCYSTEINE [Concomitant]
     Active Substance: ACETYLCYSTEINE
     Indication: COVID-19
  9. UNSPECIFIED INGREDIENT [Concomitant]
     Active Substance: UNSPECIFIED INGREDIENT
     Indication: Prophylaxis
  10. CORTISONE [Concomitant]
     Active Substance: CORTISONE
     Indication: Respiratory disorder prophylaxis

REACTIONS (4)
  - Klebsiella bacteraemia [Unknown]
  - Enterococcal bacteraemia [Unknown]
  - Respiratory tract infection fungal [Unknown]
  - Off label use [Unknown]
